FAERS Safety Report 22105458 (Version 3)
Quarter: 2025Q4

REPORT INFORMATION
  Report Type: Report from Study
  Country: TW (occurrence: TW)
  Receive Date: 20230317
  Receipt Date: 20251027
  Transmission Date: 20260118
  Serious: Yes (Death, Other)
  Sender: BOEHRINGER INGELHEIM
  Company Number: TW-BoehringerIngelheim-2023-BI-224743

PATIENT
  Age: 64 Year
  Sex: Male
  Weight: 70.5 kg

DRUGS (3)
  1. OFEV [Suspect]
     Active Substance: NINTEDANIB
     Indication: Idiopathic pulmonary fibrosis
     Dates: start: 20220630
  2. OFEV [Suspect]
     Active Substance: NINTEDANIB
     Indication: Systemic sclerosis pulmonary
  3. OFEV [Suspect]
     Active Substance: NINTEDANIB
     Indication: Interstitial lung disease

REACTIONS (2)
  - Cardiac arrest [Fatal]
  - Acute respiratory failure [Fatal]

NARRATIVE: CASE EVENT DATE: 20230313
